FAERS Safety Report 5150073-6 (Version None)
Quarter: 2006Q4

REPORT INFORMATION
  Report Type: 
  Country: None (occurrence: None)
  Receive Date: 20061113
  Receipt Date: 20060925
  Transmission Date: 20070319
  Serious: Yes (Hospitalization, Congenital Anomaly, Other)
  Sender: FDA-Public Use
  Company Number: GB-ABBOTT-06P-167-0345179-00

PATIENT
  Weight: 4.26 kg

DRUGS (1)
  1. REDUCTIL 10MG [Suspect]
     Indication: DRUG EXPOSURE DURING PREGNANCY
     Route: 048

REACTIONS (5)
  - APGAR SCORE LOW [None]
  - BLOOD PH DECREASED [None]
  - COW'S MILK INTOLERANCE [None]
  - HIP DYSPLASIA [None]
  - NEONATAL RESPIRATORY DEPRESSION [None]
